FAERS Safety Report 8432133-7 (Version None)
Quarter: 2012Q2

REPORT INFORMATION
  Report Type: 
  Country: None (occurrence: None)
  Receive Date: 20120613
  Receipt Date: 20120606
  Transmission Date: 20120825
  Serious: Yes (Disabling)
  Sender: FDA-Public Use
  Company Number: US-CELGENEUS-163-20785-12060905

PATIENT
  Sex: Male

DRUGS (5)
  1. THALOMID [Suspect]
     Dosage: 200 MILLIGRAM
     Route: 048
     Dates: start: 20100501
  2. THALOMID [Suspect]
     Dosage: 100-200MG
     Route: 048
     Dates: start: 20110401
  3. THALOMID [Suspect]
     Dosage: 50 MILLIGRAM
     Route: 048
     Dates: start: 20111201
  4. THALOMID [Suspect]
     Dosage: 300-400MG
     Route: 048
     Dates: start: 20081101
  5. THALOMID [Suspect]
     Indication: MULTIPLE MYELOMA
     Dosage: 200 MILLIGRAM
     Route: 048
     Dates: start: 20081001

REACTIONS (2)
  - PHYSICAL DISABILITY [None]
  - NEUROPATHY PERIPHERAL [None]
